FAERS Safety Report 24231068 (Version 1)
Quarter: 2024Q3

REPORT INFORMATION
  Report Type: Spontaneous
  Country: US (occurrence: US)
  Receive Date: 20240821
  Receipt Date: 20240821
  Transmission Date: 20241016
  Serious: No
  Sender: GLENMARK
  Company Number: US-GLENMARK PHARMACEUTICALS-2024GMK089744

PATIENT

DRUGS (2)
  1. TROSPIUM CHLORIDE [Suspect]
     Active Substance: TROSPIUM CHLORIDE
     Indication: Urinary incontinence
     Dosage: 1 DOSAGE FORM, QD
     Route: 065
     Dates: start: 20240302
  2. TROSPIUM CHLORIDE [Suspect]
     Active Substance: TROSPIUM CHLORIDE
     Dosage: 2 DOSAGE FORM, OD (DOSE INCREASED)
     Route: 065
     Dates: start: 20240308

REACTIONS (2)
  - Product use issue [Unknown]
  - Drug ineffective [Unknown]
